FAERS Safety Report 22390826 (Version 10)
Quarter: 2024Q1

REPORT INFORMATION
  Report Type: Report from Study
  Country: PT (occurrence: PT)
  Receive Date: 20230531
  Receipt Date: 20240219
  Transmission Date: 20240410
  Serious: Yes (Hospitalization, Other)
  Sender: FDA-Public Use
  Company Number: PT-ABBVIE-5185382

PATIENT
  Age: 71 Year
  Sex: Female

DRUGS (19)
  1. CARBIDOPA\LEVODOPA [Suspect]
     Active Substance: CARBIDOPA\LEVODOPA
     Indication: Parkinson^s disease
     Dosage: 20 MG + 5 MG (VIA PEG)?FREQUENCY TEXT: MORN:10CC;MAINT:4.5CC/H;EXTR:3CC,LL0?RELATED TO PRODUCT CO...
     Route: 050
     Dates: start: 20230529, end: 20230616
  2. CARBIDOPA\LEVODOPA [Suspect]
     Active Substance: CARBIDOPA\LEVODOPA
     Dosage: 20 MG + 5 MG?FREQUENCY TEXT: MORN:12(7+5)CC;MAINT:2CC/H;EXTR:2CC?STOP DATE TEXT: UNKNOWN
     Route: 050
     Dates: start: 20210707
  3. CARBIDOPA\LEVODOPA [Suspect]
     Active Substance: CARBIDOPA\LEVODOPA
     Dosage: 20 MG + 5 MG?FREQUENCY TEXT: MORN:10CC;MAINT:4.5CC/H;EXTR:3CC,LL0?FIRST ADMIN DATE: 2023
     Route: 050
     Dates: start: 2023, end: 20230529
  4. CARBIDOPA\LEVODOPA [Suspect]
     Active Substance: CARBIDOPA\LEVODOPA
     Dosage: 20 MG + 5 MG (VIA PEG)?FREQUENCY TEXT: MORN:10CC;MAINT:5CC/H;EXTR:5CC,LL0
     Route: 050
     Dates: start: 20230728, end: 20230807
  5. CARBIDOPA\LEVODOPA [Suspect]
     Active Substance: CARBIDOPA\LEVODOPA
     Dosage: 20 MG + 5 MG?FREQUENCY TEXT: MORN:10CC;MAINT:5.5CC/H;EXTR:5.5CC
     Route: 050
     Dates: start: 20230809, end: 2023
  6. CARBIDOPA\LEVODOPA [Suspect]
     Active Substance: CARBIDOPA\LEVODOPA
     Dosage: 20 MG + 5 MG?ADDITIONAL COMMENTS: NEUROLOGIST CANNOT PROVIDE THIS INFORMATION?FREQUENCY TEXT: MOR...
     Route: 050
     Dates: start: 20230807, end: 20230809
  7. CARBIDOPA\LEVODOPA [Suspect]
     Active Substance: CARBIDOPA\LEVODOPA
     Dosage: 20 MG + 5 MG (VIA PEG)
     Route: 050
     Dates: start: 20230616, end: 202306
  8. CARBIDOPA\LEVODOPA [Suspect]
     Active Substance: CARBIDOPA\LEVODOPA
     Dosage: 20 MG + 5 MG (VIA PEG)
     Route: 050
     Dates: start: 202306, end: 20230728
  9. CARBIDOPA\LEVODOPA [Suspect]
     Active Substance: CARBIDOPA\LEVODOPA
     Route: 050
     Dates: start: 2023
  10. ESCITALOPRAM [Concomitant]
     Active Substance: ESCITALOPRAM OXALATE
     Indication: Product used for unknown indication
     Dosage: 1 TABLET?STRENGTH: 20 MG?START DATE TEXT: BEFORE DUODOPA
  11. CLOXAZOLAM [Concomitant]
     Active Substance: CLOXAZOLAM
     Indication: Product used for unknown indication
     Dosage: FORM STRENGTH: 2 MG?FREQUENCY TEXT: ONCE AT NIGHT?START DATE TEXT: BEFORE DUODOPA
  12. RIVOTRIL [Concomitant]
     Active Substance: CLONAZEPAM
     Indication: Product used for unknown indication
     Dosage: 2 TABLET?FORM STRENGTH: 0.5 MG
  13. RIVOTRIL [Concomitant]
     Active Substance: CLONAZEPAM
     Indication: Product used for unknown indication
     Dosage: 1 TABLET AT BEDTIME?FORM STRENGTH: 2 MG?START DATE TEXT: BEFORE DUODOPA
  14. QUETIAPINE [Concomitant]
     Active Substance: QUETIAPINE
     Indication: Product used for unknown indication
     Dosage: START DATE TEXT: BEFORE DUODOPA
  15. RIVASTIGMINE [Concomitant]
     Active Substance: RIVASTIGMINE
     Indication: Product used for unknown indication
     Route: 062
  16. RIVASTIGMINE [Concomitant]
     Active Substance: RIVASTIGMINE
     Indication: Product used for unknown indication
     Dosage: FORM STRENGTH: 4.6 MG?FREQUENCY TEXT: ONCE DAILY?START DATE TEXT: BEFORE DUODOPA
     Route: 062
  17. DOMPERIDONE [Concomitant]
     Active Substance: DOMPERIDONE
     Indication: Product used for unknown indication
     Dosage: TIME INTERVAL: 0.33333333 DAYS: 3 TABLET?STRENGTH: 10 MG?START DATE TEXT: BEFORE DUODOPA
  18. AMITRIPTYLINE [Concomitant]
     Active Substance: AMITRIPTYLINE
     Indication: Product used for unknown indication
     Dosage: FORM STRENGTH: 25 MG?START DATE TEXT: BEFORE DUODOPA
  19. OMEPRAZOLE [Concomitant]
     Active Substance: OMEPRAZOLE
     Indication: Product used for unknown indication
     Dosage: 1 TABLET?STRENGTH: 40 MG?START DATE TEXT: BEFORE DUODOPA

REACTIONS (11)
  - Ileus paralytic [Recovered/Resolved]
  - Colitis [Not Recovered/Not Resolved]
  - Device kink [Recovered/Resolved]
  - Off label use [Recovered/Resolved]
  - Abdominal pain upper [Recovered/Resolved]
  - Panniculitis [Unknown]
  - Anxiety [Recovered/Resolved]
  - Impaired gastric emptying [Recovered/Resolved]
  - Gait disturbance [Recovered/Resolved]
  - Gastrointestinal pain [Recovered/Resolved]
  - Gastrointestinal pain [Not Recovered/Not Resolved]

NARRATIVE: CASE EVENT DATE: 20230101
